FAERS Safety Report 6903934-9 (Version None)
Quarter: 2010Q3

REPORT INFORMATION
  Report Type: 
  Country: None (occurrence: None)
  Receive Date: 20100804
  Receipt Date: 20090214
  Transmission Date: 20110219
  Serious: No
  Sender: FDA-Public Use
  Company Number: US-PFIZER INC-2009158723

PATIENT
  Sex: Female
  Weight: 122.9 kg

DRUGS (15)
  1. LYRICA [Suspect]
     Indication: DIABETIC NEUROPATHY
     Dosage: 50 MG, 3X/DAY
     Dates: start: 20070516
  2. LISINOPRIL [Concomitant]
     Dosage: UNK
  3. NORVASC [Concomitant]
     Dosage: UNK
  4. ATENOLOL [Concomitant]
     Dosage: UNK
  5. NPH INSULIN [Concomitant]
     Dosage: UNK
  6. ANASTROZOLE [Concomitant]
     Dosage: UNK
  7. CLONAZEPAM [Concomitant]
     Indication: DEPRESSION
     Dosage: UNK
  8. AMBIEN [Concomitant]
     Indication: SLEEP DISORDER
     Dosage: UNK
  9. LEXAPRO [Concomitant]
     Dosage: UNK
  10. GABITRIL [Concomitant]
     Dosage: UNK
  11. PIROXICAM [Concomitant]
     Dosage: UNK
  12. ASPIRIN [Concomitant]
     Dosage: UNK
  13. PRILOSEC [Concomitant]
     Dosage: UNK
  14. DITROPAN XL [Concomitant]
     Dosage: UNK
  15. PERCOCET [Concomitant]
     Dosage: UNK

REACTIONS (1)
  - NEPHROLITHIASIS [None]
